FAERS Safety Report 17689618 (Version 2)
Quarter: 2020Q2

REPORT INFORMATION
  Report Type: Spontaneous
  Country: US (occurrence: US)
  Receive Date: 20200421
  Receipt Date: 20200424
  Transmission Date: 20200714
  Serious: Yes (Death, Life-Threatening, Hospitalization, Other)
  Sender: FDA-Public Use
  Company Number: US-AMGEN-USASP2020063101

PATIENT

DRUGS (5)
  1. XGEVA [Suspect]
     Active Substance: DENOSUMAB
     Indication: NEOPLASM MALIGNANT
     Dosage: UNK
     Route: 058
  2. XGEVA [Suspect]
     Active Substance: DENOSUMAB
     Indication: HYPERCALCAEMIA OF MALIGNANCY
  3. CALCIUM [Concomitant]
     Active Substance: CALCIUM
  4. XGEVA [Suspect]
     Active Substance: DENOSUMAB
     Indication: PROPHYLAXIS
  5. VITAMINE D [Concomitant]
     Active Substance: CHOLECALCIFEROL

REACTIONS (5)
  - Acute hepatic failure [Fatal]
  - Unevaluable event [Unknown]
  - Sepsis [Fatal]
  - Hypocalcaemia [Fatal]
  - Pulmonary embolism [Fatal]
